FAERS Safety Report 11512499 (Version 1)
Quarter: 2015Q3

REPORT INFORMATION
  Report Type: Report from Study
  Country: CO (occurrence: CO)
  Receive Date: 20150916
  Receipt Date: 20150916
  Transmission Date: 20151125
  Serious: Yes (Death)
  Sender: FDA-Public Use
  Company Number: PHHY2015CO110689

PATIENT
  Sex: Female
  Weight: 56 kg

DRUGS (1)
  1. TASIGNA [Suspect]
     Active Substance: NILOTINIB
     Indication: LEUKAEMIA
     Dosage: UNK UNK, QID (2 IN THE MORNING AND 2 AT NIGHT)
     Route: 065

REACTIONS (3)
  - Internal haemorrhage [Fatal]
  - Respiratory arrest [Fatal]
  - Transfusion related complication [Unknown]
